FAERS Safety Report 10473945 (Version 8)
Quarter: 2015Q3

REPORT INFORMATION
  Report Type: Report from Study
  Country: US (occurrence: US)
  Receive Date: 20140924
  Receipt Date: 20150710
  Transmission Date: 20151125
  Serious: Yes (Hospitalization, Other)
  Sender: FDA-Public Use
  Company Number: US-SA-2014SA108904

PATIENT
  Age: 65 Year
  Sex: Male

DRUGS (6)
  1. AUBAGIO [Suspect]
     Active Substance: TERIFLUNOMIDE
     Indication: MULTIPLE SCLEROSIS
     Route: 048
     Dates: start: 20140218, end: 20140804
  2. AUBAGIO [Suspect]
     Active Substance: TERIFLUNOMIDE
     Indication: MULTIPLE SCLEROSIS
     Route: 048
     Dates: start: 20140916, end: 20150311
  3. LEXAPRO [Concomitant]
     Active Substance: ESCITALOPRAM OXALATE
  4. LEXAPRO [Concomitant]
     Active Substance: ESCITALOPRAM OXALATE
  5. AUBAGIO [Suspect]
     Active Substance: TERIFLUNOMIDE
     Indication: MULTIPLE SCLEROSIS
     Route: 048
     Dates: start: 20140101
  6. LEXAPRO [Concomitant]
     Active Substance: ESCITALOPRAM OXALATE

REACTIONS (25)
  - Delirium [Recovered/Resolved]
  - Sluggishness [Unknown]
  - Pyrexia [Unknown]
  - Somnolence [Unknown]
  - Functional gastrointestinal disorder [Unknown]
  - Urinary tract infection [Not Recovered/Not Resolved]
  - Mobility decreased [Not Recovered/Not Resolved]
  - Fall [Not Recovered/Not Resolved]
  - Hypokinesia [Recovering/Resolving]
  - Unevaluable event [Recovering/Resolving]
  - Bladder dysfunction [Not Recovered/Not Resolved]
  - Head injury [Unknown]
  - Weight decreased [Unknown]
  - Central nervous system lesion [Unknown]
  - Pain in extremity [Not Recovered/Not Resolved]
  - Peripheral coldness [Unknown]
  - Unevaluable event [Unknown]
  - Drug dose omission [Unknown]
  - Inguinal hernia [Recovered/Resolved]
  - Muscle spasms [Not Recovered/Not Resolved]
  - Injury [Recovered/Resolved]
  - Agitation [Unknown]
  - Dysphagia [Unknown]
  - Influenza like illness [Recovered/Resolved]
  - Progressive multiple sclerosis [Unknown]

NARRATIVE: CASE EVENT DATE: 2014
